FAERS Safety Report 13699186 (Version 2)
Quarter: 2017Q3

REPORT INFORMATION
  Report Type: Spontaneous
  Country: IT (occurrence: IT)
  Receive Date: 20170628
  Receipt Date: 20170731
  Transmission Date: 20171127
  Serious: Yes (Life-Threatening, Hospitalization, Other)
  Sender: FDA-Public Use
  Company Number: IT-BAUSCH-BL-2017-020206

PATIENT
  Age: 62 Year
  Sex: Male

DRUGS (3)
  1. METRONIDAZOLE. [Suspect]
     Active Substance: METRONIDAZOLE
     Indication: CLOSTRIDIUM DIFFICILE INFECTION
     Dosage: LEFT EYE
     Route: 065
     Dates: start: 201605, end: 201605
  2. CIPROFLOXACIN SALT (NOT SPECIFIED) [Suspect]
     Active Substance: CIPROFLOXACIN
     Indication: ANTIBIOTIC PROPHYLAXIS
     Route: 065
     Dates: start: 201604, end: 201604
  3. CEFTAZIDIME. [Suspect]
     Active Substance: CEFTAZIDIME
     Indication: URINARY TRACT INFECTION
     Route: 065
     Dates: start: 201604, end: 201604

REACTIONS (6)
  - Pseudomembranous colitis [Recovered/Resolved]
  - Listeriosis [Recovered/Resolved]
  - Septic shock [Recovered/Resolved]
  - Coma [Recovered/Resolved]
  - Meningitis [Recovered/Resolved]
  - Bacteraemia [Recovered/Resolved]

NARRATIVE: CASE EVENT DATE: 2016
